FAERS Safety Report 12571283 (Version 1)
Quarter: 2016Q3

REPORT INFORMATION
  Report Type: Spontaneous
  Country: US (occurrence: US)
  Receive Date: 20160719
  Receipt Date: 20160719
  Transmission Date: 20161109
  Serious: No
  Sender: FDA-Public Use
  Company Number: US-BAUSCH-BL-2015-023748

PATIENT
  Age: 61 Year
  Sex: Female
  Weight: 60.84 kg

DRUGS (8)
  1. BENAZEPRIL [Concomitant]
     Active Substance: BENAZEPRIL HYDROCHLORIDE
     Indication: HYPERTENSION
     Route: 048
     Dates: start: 2015
  2. RIBAVIRIN. [Suspect]
     Active Substance: RIBAVIRIN
     Indication: HEPATITIS C
     Route: 065
  3. ZYRTEC [Concomitant]
     Active Substance: CETIRIZINE HYDROCHLORIDE
     Indication: PRODUCT USED FOR UNKNOWN INDICATION
     Route: 048
  4. XIFAXAN [Suspect]
     Active Substance: RIFAXIMIN
     Indication: HEPATIC ENCEPHALOPATHY
  5. XIFAXAN [Suspect]
     Active Substance: RIFAXIMIN
     Indication: HEPATITIS C
     Route: 048
     Dates: start: 20150707
  6. AMLODIPINE [Concomitant]
     Active Substance: AMLODIPINE BESYLATE
     Indication: HYPERTENSION
     Route: 048
     Dates: start: 2015
  7. BENADRYL [Concomitant]
     Active Substance: DIPHENHYDRAMINE HYDROCHLORIDE
     Indication: PRODUCT USED FOR UNKNOWN INDICATION
     Route: 048
  8. CLARITIN [Concomitant]
     Active Substance: LORATADINE
     Indication: PRODUCT USED FOR UNKNOWN INDICATION
     Route: 048

REACTIONS (10)
  - Drug interaction [Recovering/Resolving]
  - Tooth infection [Recovering/Resolving]
  - Blood pressure increased [Recovering/Resolving]
  - Amnesia [Recovering/Resolving]
  - Rash [Recovering/Resolving]
  - Weight increased [Recovering/Resolving]
  - Off label use [Not Recovered/Not Resolved]
  - Arrhythmia [Recovering/Resolving]
  - Panic attack [Recovering/Resolving]
  - Insomnia [Recovering/Resolving]

NARRATIVE: CASE EVENT DATE: 2015
